FAERS Safety Report 5301297-6 (Version None)
Quarter: 2007Q2

REPORT INFORMATION
  Report Type: 
  Country: None (occurrence: None)
  Receive Date: 20070418
  Receipt Date: 20070410
  Transmission Date: 20071010
  Serious: Yes (Other)
  Sender: FDA-Public Use
  Company Number: US-PFIZER INC-2007028991

PATIENT
  Sex: Female
  Weight: 52.2 kg

DRUGS (3)
  1. DEPO-PROVERA [Suspect]
     Indication: CONTRACEPTION
     Route: 030
     Dates: start: 20061001, end: 20061001
  2. DEPO-PROVERA [Suspect]
     Route: 030
     Dates: start: 20070101, end: 20070101
  3. VALTREX [Concomitant]

REACTIONS (4)
  - HEART RATE INCREASED [None]
  - HYPERTENSION [None]
  - MENORRHAGIA [None]
  - STRESS [None]
